FAERS Safety Report 21658142 (Version 1)
Quarter: 2022Q4

REPORT INFORMATION
  Report Type: Spontaneous
  Country: US (occurrence: None)
  Receive Date: 20221128
  Receipt Date: 20221128
  Transmission Date: 20230113
  Serious: No
  Sender: FDA-Public Use
  Company Number: None

PATIENT
  Age: 77 Year
  Sex: Female
  Weight: 50.8 kg

DRUGS (31)
  1. LENALIDOMIDE [Suspect]
     Active Substance: LENALIDOMIDE
     Indication: Plasma cell myeloma
     Dosage: OTHER FREQUENCY : 3W,1W OFF;?
     Route: 048
  2. ACYCLOVIR [Concomitant]
  3. ARTHROMAX ADVANCED [Concomitant]
  4. ASPIRIN [Concomitant]
  5. ATORVASTATIN [Concomitant]
  6. BONE RESTORE ELITE [Concomitant]
  7. BONE STRENGTH COLLAGEN FORMULA [Concomitant]
  8. CALCIUM 500 +D [Concomitant]
  9. COENZYME Q10 [Concomitant]
     Active Substance: DIETARY SUPPLEMENT\UBIDECARENONE
  10. COLLAGEN ULTRA ORAL CAPSULE [Concomitant]
  11. DARK CHOCOLATE [Concomitant]
  12. DEMEXAMETHASONE [Concomitant]
  13. ENHANCED STRESS RELIEF [Concomitant]
  14. EVISTA [Concomitant]
     Active Substance: RALOXIFENE HYDROCHLORIDE
  15. FISH OIL [Concomitant]
  16. HERBAL SLEEP PM [Concomitant]
  17. KLOR-CON [Concomitant]
  18. LINZESS [Concomitant]
  19. MAGNESIUM OXIDE [Concomitant]
  20. METHYLCOBALAMIN POWDER [Concomitant]
  21. METOPROLOL [Concomitant]
  22. MULTIVITAMIN [Concomitant]
  23. PEPPERMINT OIL [Concomitant]
  24. PROCTOSOL [Concomitant]
  25. DIETARY SUPPLEMENT [Concomitant]
     Active Substance: DIETARY SUPPLEMENT
  26. TUMERIC [Concomitant]
  27. VAGIFEM [Concomitant]
     Active Substance: ESTRADIOL
  28. VINPOCETINE POWDER [Concomitant]
  29. VITAMIN B12 [Concomitant]
  30. VITAMIN D3 [Concomitant]
  31. ZINC [Concomitant]

REACTIONS (3)
  - Full blood count decreased [None]
  - Fatigue [None]
  - Anaemia [None]
